FAERS Safety Report 21778405 (Version 1)
Quarter: 2022Q4

REPORT INFORMATION
  Report Type: Spontaneous
  Country: US (occurrence: US)
  Receive Date: 20221226
  Receipt Date: 20221226
  Transmission Date: 20230113
  Serious: No
  Sender: FDA-Public Use
  Company Number: US-MIGRATION_PFIZER-2022BHV003077

PATIENT
  Age: 68 Year
  Sex: Male
  Weight: 44.583 kg

DRUGS (1)
  1. NURTEC ODT [Suspect]
     Active Substance: RIMEGEPANT SULFATE
     Indication: Tension headache
     Dosage: ACUTE; PATIENT ONLY TOOK ONE NURTEC ODT ONE TIME.
     Dates: start: 202210, end: 202210

REACTIONS (1)
  - Drug ineffective for unapproved indication [Unknown]

NARRATIVE: CASE EVENT DATE: 20221001
